FAERS Safety Report 9501764 (Version 2)
Quarter: 2013Q4

REPORT INFORMATION
  Report Type: Spontaneous
  Country: JP (occurrence: JP)
  Receive Date: 20130905
  Receipt Date: 20131218
  Transmission Date: 20140711
  Serious: No
  Sender: FDA-Public Use
  Company Number: PHHY2013JP095415

PATIENT
  Sex: Male

DRUGS (4)
  1. NEORAL [Suspect]
     Indication: RENAL TRANSPLANT
     Dosage: 150 MG, DAILY
     Route: 048
  2. CELLCEPT [Concomitant]
     Dosage: 1000 MG, UNK
     Route: 048
  3. SULFAMETHOXAZOLE AND TRIMETHOPRIM [Concomitant]
     Dosage: 5 MG, UNK
     Route: 048
  4. IMMUNOSUPPRESSANTS [Concomitant]

REACTIONS (1)
  - Gastric polyps [Recovering/Resolving]
